FAERS Safety Report 14145837 (Version 1)
Quarter: 2017Q4

REPORT INFORMATION
  Report Type: Other
  Country: FR (occurrence: FR)
  Receive Date: 20171031
  Receipt Date: 20171031
  Transmission Date: 20180321
  Serious: Yes (Hospitalization, Other)
  Sender: FDA-Public Use
  Company Number: FR-EMCURE PHARMS-2017HTG00326

PATIENT
  Age: 59 Year
  Sex: Female

DRUGS (4)
  1. TEPADINA [Suspect]
     Active Substance: THIOTEPA
     Indication: B-CELL LYMPHOMA
     Dosage: 5 MG/KG, 2X/DAY
     Route: 042
     Dates: start: 20170808, end: 20170809
  2. BICNU [Suspect]
     Active Substance: CARMUSTINE
     Indication: B-CELL LYMPHOMA
     Dosage: 744.8 MG, 1X/DAY
     Route: 042
     Dates: start: 20170807, end: 20170807
  3. TRIATEC [Concomitant]
     Active Substance: RAMIPRIL
  4. IXPRIM [Concomitant]
     Active Substance: ACETAMINOPHEN\TRAMADOL HYDROCHLORIDE

REACTIONS (6)
  - Confusional state [Recovering/Resolving]
  - Coma [Recovering/Resolving]
  - Speech disorder [Recovering/Resolving]
  - Aphasia [Recovered/Resolved]
  - Encephalopathy [Recovering/Resolving]
  - Pyrexia [Recovered/Resolved]

NARRATIVE: CASE EVENT DATE: 20170818
